FAERS Safety Report 15297373 (Version 2)
Quarter: 2018Q3

REPORT INFORMATION
  Report Type: Spontaneous
  Country: US (occurrence: US)
  Receive Date: 20180820
  Receipt Date: 20180914
  Transmission Date: 20181010
  Serious: No
  Sender: FDA-Public Use
  Company Number: US-ASTRAZENECA-2018SF00717

PATIENT
  Age: 23845 Day
  Sex: Male
  Weight: 83 kg

DRUGS (1)
  1. BYDUREON [Suspect]
     Active Substance: EXENATIDE
     Indication: TYPE 2 DIABETES MELLITUS
     Route: 058

REACTIONS (7)
  - Oropharyngeal pain [Not Recovered/Not Resolved]
  - Device malfunction [Unknown]
  - Dysphonia [Not Recovered/Not Resolved]
  - Injection site indentation [Unknown]
  - Upper-airway cough syndrome [Unknown]
  - Drug dose omission by device [Unknown]
  - Injection site haemorrhage [Unknown]

NARRATIVE: CASE EVENT DATE: 20180725
